FAERS Safety Report 8664803 (Version 6)
Quarter: 2013Q4

REPORT INFORMATION
  Report Type: Report from Study
  Country: FR (occurrence: FR)
  Receive Date: 20120713
  Receipt Date: 20131004
  Transmission Date: 20140711
  Serious: Yes (Death, Life-Threatening, Hospitalization)
  Sender: FDA-Public Use
  Company Number: FR-PFIZER INC-2012164521

PATIENT
  Age: 65 Year
  Sex: Male
  Weight: 78 kg

DRUGS (3)
  1. AXITINIB [Suspect]
     Indication: NEOPLASM
     Dosage: 6 MG, PER DAY, IN 6 INTAKES
     Dates: start: 20110913, end: 20120627
  2. EVEROLIMUS [Suspect]
     Indication: NEOPLASM
     Dosage: 5 MG, PER DAY, IN ONE INTAKE
     Dates: start: 20110920, end: 20120627
  3. EXFORGE [Concomitant]
     Dosage: UNK
     Dates: start: 201205, end: 201206

REACTIONS (4)
  - Cardiomyopathy [Fatal]
  - Ejection fraction decreased [Fatal]
  - Acute pulmonary oedema [Recovered/Resolved]
  - Hypercapnic coma [Recovered/Resolved]
